FAERS Safety Report 6961699-9 (Version None)
Quarter: 2010Q3

REPORT INFORMATION
  Report Type: 
  Country: None (occurrence: None)
  Receive Date: 20100901
  Receipt Date: 20100820
  Transmission Date: 20110219
  Serious: Yes (Other)
  Sender: FDA-Public Use
  Company Number: PL-AMGEN-QUU435185

PATIENT
  Sex: Female
  Weight: 52 kg

DRUGS (1)
  1. ENBREL [Suspect]
     Indication: PRODUCT USED FOR UNKNOWN INDICATION
     Route: 058
     Dates: start: 20091215, end: 20100119

REACTIONS (3)
  - INJECTION SITE ANAESTHESIA [None]
  - INJECTION SITE REACTION [None]
  - SENSORY DISTURBANCE [None]
